FAERS Safety Report 5786744-8 (Version None)
Quarter: 2008Q2

REPORT INFORMATION
  Report Type: 
  Country: None (occurrence: None)
  Receive Date: 20080618
  Receipt Date: 20080605
  Transmission Date: 20081010
  Serious: Yes (Hospitalization)
  Sender: FDA-Public Use
  Company Number: CIP08001008

PATIENT
  Age: 89 Year
  Sex: Female

DRUGS (3)
  1. MACRODANTIN [Suspect]
     Indication: PROPHYLAXIS URINARY TRACT INFECTION
     Dosage: 50 MG ONCE DAILY, ORAL
     Route: 048
  2. FOSAMAX [Concomitant]
  3. LASIX [Concomitant]

REACTIONS (2)
  - HYPERCALCAEMIA [None]
  - LIVER FUNCTION TEST ABNORMAL [None]
